FAERS Safety Report 10092120 (Version 1)
Quarter: 2014Q2

REPORT INFORMATION
  Report Type: Spontaneous
  Country: US (occurrence: US)
  Receive Date: 20140421
  Receipt Date: 20140421
  Transmission Date: 20141212
  Serious: No
  Sender: FDA-Public Use
  Company Number: US-SANOFI-AVENTIS-2013SA036731

PATIENT
  Age: 60 Year
  Sex: Male

DRUGS (1)
  1. ALLEGRA [Suspect]
     Indication: UPPER-AIRWAY COUGH SYNDROME
     Dosage: TAKEN FROM-A COUPLE WEEKS AGO, FREQUENCY- IN MORNING

REACTIONS (3)
  - Drug ineffective [Unknown]
  - Wrong technique in drug usage process [Unknown]
  - Extra dose administered [Unknown]
